FAERS Safety Report 5084238-9 (Version None)
Quarter: 2006Q3

REPORT INFORMATION
  Report Type: 
  Country: None (occurrence: None)
  Receive Date: 20060821
  Receipt Date: 20060308
  Transmission Date: 20061208
  Serious: No
  Sender: FDA-Public Use
  Company Number: US-BRISTOL-MYERS SQUIBB COMPANY-13307327

PATIENT
  Sex: Female
  Weight: 66 kg

DRUGS (2)
  1. TEQUIN [Suspect]
     Indication: TONSILLITIS
     Dates: start: 20060302, end: 20060307
  2. PREMARIN [Concomitant]

REACTIONS (7)
  - CHOKING [None]
  - COUGH [None]
  - DIZZINESS [None]
  - FEELING DRUNK [None]
  - HEADACHE [None]
  - NAUSEA [None]
  - VOMITING [None]
